FAERS Safety Report 11226053 (Version 1)
Quarter: 2015Q2

REPORT INFORMATION
  Report Type: Spontaneous
  Country: BR (occurrence: BR)
  Receive Date: 20150629
  Receipt Date: 20150629
  Transmission Date: 20150821
  Serious: Yes (Hospitalization, Other)
  Sender: FDA-Public Use
  Company Number: BR-PFIZER INC-2015211123

PATIENT
  Age: 60 Year
  Sex: Male
  Weight: 89 kg

DRUGS (3)
  1. MONOCORDIL [Concomitant]
     Active Substance: ISOSORBIDE MONONITRATE
     Indication: CARDIAC DISORDER
     Dosage: 1 TABLET, DAILY
     Dates: start: 1999
  2. LIPITOR [Suspect]
     Active Substance: ATORVASTATIN CALCIUM
     Indication: CARDIAC DISORDER
     Dosage: 10 MG, UNK
     Route: 048
     Dates: start: 2005, end: 201506
  3. AAS INFANTIL [Concomitant]
     Active Substance: ASPIRIN
     Indication: BLOOD DISORDER
     Dosage: 2 TABLETS, DAILY
     Dates: start: 1999

REACTIONS (2)
  - Angiopathy [Unknown]
  - Venous occlusion [Unknown]

NARRATIVE: CASE EVENT DATE: 20150618
